FAERS Safety Report 5897691-5 (Version None)
Quarter: 2008Q3

REPORT INFORMATION
  Report Type: 
  Country: None (occurrence: None)
  Receive Date: 20080924
  Receipt Date: 20080924
  Transmission Date: 20090109
  Serious: Yes (Hospitalization)
  Sender: FDA-Public Use
  Company Number: None

PATIENT
  Sex: Male
  Weight: 62.1428 kg

DRUGS (2)
  1. TRUVADA [Suspect]
     Indication: HIV INFECTION
     Dosage: AS ABOVE DAILY PO
     Route: 048
  2. COZAAR [Suspect]
     Indication: HYPERTENSION
     Dosage: AS ABOVE DAILY PO
     Route: 048

REACTIONS (5)
  - HAEMODIALYSIS [None]
  - HYPERTENSION [None]
  - RENAL FAILURE ACUTE [None]
  - RENAL TUBULAR NECROSIS [None]
  - WEIGHT DECREASED [None]
